FAERS Safety Report 9773123 (Version 4)
Quarter: 2014Q1

REPORT INFORMATION
  Report Type: Report from Study
  Country: US (occurrence: US)
  Receive Date: 20131219
  Receipt Date: 20140121
  Transmission Date: 20141002
  Serious: Yes (Death, Hospitalization)
  Sender: FDA-Public Use
  Company Number: US-B.I. PHARMACEUTICALS,INC./RIDGEFIELD-2013-BI-42096BI

PATIENT
  Age: 73 Year
  Sex: Female

DRUGS (5)
  1. GILOTRIF [Suspect]
     Indication: NON-SMALL CELL LUNG CANCER
     Dosage: 30 MG
     Route: 048
     Dates: start: 20131123, end: 20131216
  2. GILOTRIF [Suspect]
     Indication: LUNG NEOPLASM MALIGNANT
     Dosage: 30 MG
     Route: 048
     Dates: start: 20131101, end: 20140101
  3. HORMONES [Concomitant]
  4. UNKNOWN MEDICATION [Concomitant]
     Indication: ABDOMINAL PAIN UPPER
  5. UNKNOWN MEDICATION [Concomitant]
     Indication: INFECTION

REACTIONS (7)
  - Death [Fatal]
  - Hepatic enzyme increased [Not Recovered/Not Resolved]
  - Anxiety [Not Recovered/Not Resolved]
  - Burning sensation [Not Recovered/Not Resolved]
  - Headache [Not Recovered/Not Resolved]
  - Thinking abnormal [Not Recovered/Not Resolved]
  - Fatigue [Not Recovered/Not Resolved]
